FAERS Safety Report 10166477 (Version 1)
Quarter: 2014Q2

REPORT INFORMATION
  Report Type: Spontaneous
  Country: US (occurrence: US)
  Receive Date: 20140512
  Receipt Date: 20140512
  Transmission Date: 20141212
  Serious: Yes (Other)
  Sender: FDA-Public Use
  Company Number: US-BAYER-2014-068837

PATIENT
  Age: 25 Year
  Sex: Female

DRUGS (6)
  1. YASMIN [Suspect]
     Dosage: UNK
     Dates: start: 199501, end: 20050401
  2. BEYAZ [Suspect]
     Dosage: UNK
     Dates: start: 199501, end: 20050401
  3. SAFYRAL [Suspect]
     Dosage: UNK
     Dates: start: 199501, end: 20050401
  4. OCELLA [Suspect]
     Dosage: UNK
     Dates: start: 199501, end: 20050401
  5. YAZ [Suspect]
     Dosage: UNK
     Dates: start: 199501, end: 20050401
  6. GIANVI [Suspect]
     Dosage: UNK
     Dates: start: 199501, end: 20050401

REACTIONS (1)
  - Thrombosis [None]
